FAERS Safety Report 4800364-0 (Version None)
Quarter: 2005Q4

REPORT INFORMATION
  Report Type: 
  Country: None (occurrence: None)
  Receive Date: 20051017
  Receipt Date: 20050617
  Transmission Date: 20060501
  Serious: Yes (Hospitalization)
  Sender: FDA-Public Use
  Company Number: PT-MERCK-0507PRT00004

PATIENT
  Age: 6 Year
  Sex: Male

DRUGS (5)
  1. COUGH, COLD, AND FLU THERAPIES (UNSPECIFIED) [Concomitant]
     Indication: ASTHMA
     Route: 065
  2. CORTICOSTEROIDS (UNSPECIFIED) [Concomitant]
     Indication: ASTHMA
     Route: 048
  3. CORTICOSTEROIDS (UNSPECIFIED) [Concomitant]
     Route: 055
  4. [THERAPY UNSPECIFIED] [Concomitant]
     Indication: ASTHMA
     Route: 065
  5. SINGULAIR [Suspect]
     Indication: ASTHMA
     Route: 048

REACTIONS (5)
  - ALLERGIC GRANULOMATOUS ANGIITIS [None]
  - CYSTIC FIBROSIS [None]
  - HYPERTENSION [None]
  - MALNUTRITION [None]
  - OBLITERATIVE BRONCHIOLITIS [None]
